FAERS Safety Report 9887806 (Version 1)
Quarter: 2014Q1

REPORT INFORMATION
  Report Type: Spontaneous
  Country: FR (occurrence: FR)
  Receive Date: 20140211
  Receipt Date: 20140211
  Transmission Date: 20141002
  Serious: Yes (Hospitalization)
  Sender: FDA-Public Use
  Company Number: FR-ASTRAZENECA-2014SE07785

PATIENT
  Age: 15160 Day
  Sex: Male

DRUGS (7)
  1. XEROQUEL [Suspect]
     Route: 048
  2. TEGRETOL [Suspect]
     Indication: BIPOLAR DISORDER
     Route: 048
     Dates: start: 20130817, end: 20130819
  3. TIAPRIDAL [Suspect]
     Route: 048
     Dates: start: 20130814, end: 20130818
  4. DEPAMIDE [Suspect]
     Route: 048
  5. ANAFRANIL [Suspect]
     Route: 048
  6. VALIUM ROCHE [Concomitant]
     Route: 048
  7. ATARAX [Concomitant]
     Route: 048

REACTIONS (10)
  - Alcoholism [Unknown]
  - Hypertensive crisis [Unknown]
  - Inappropriate antidiuretic hormone secretion [Unknown]
  - Hypochloraemia [Unknown]
  - Blood creatinine decreased [Unknown]
  - Blood urea decreased [Unknown]
  - Hypouricaemia [Unknown]
  - Fluid overload [Unknown]
  - Blood osmolarity decreased [Unknown]
  - Hyponatraemia [Recovered/Resolved]
